FAERS Safety Report 21755843 (Version 1)
Quarter: 2022Q4

REPORT INFORMATION
  Report Type: Spontaneous
  Country: JP (occurrence: JP)
  Receive Date: 20221220
  Receipt Date: 20221220
  Transmission Date: 20230112
  Serious: Yes (Life-Threatening, Hospitalization, Disabling, Other)
  Sender: FDA-Public Use
  Company Number: JP-DSJP-DSJ-2022-140800

PATIENT
  Age: 72 Year
  Sex: Female
  Weight: 55 kg

DRUGS (7)
  1. PRASUGREL HYDROCHLORIDE [Interacting]
     Active Substance: PRASUGREL HYDROCHLORIDE
     Indication: Cerebral infarction
     Dosage: 3.75 MG, QD
     Route: 048
     Dates: start: 20221007, end: 20221013
  2. ARGATROBAN [Interacting]
     Active Substance: ARGATROBAN
     Indication: Cerebral infarction
     Dosage: 60 MG, QD
     Route: 042
     Dates: start: 20221007, end: 20221009
  3. ARGATROBAN [Interacting]
     Active Substance: ARGATROBAN
     Dosage: 10 MG, BID
     Route: 042
     Dates: start: 20221010, end: 20221012
  4. ROSUVASTATIN CALCIUM [Concomitant]
     Active Substance: ROSUVASTATIN CALCIUM
     Indication: Dyslipidaemia
     Dosage: 5 MG, QD
     Route: 048
     Dates: start: 20221007
  5. LANSOPRAZOLE [Concomitant]
     Active Substance: LANSOPRAZOLE
     Indication: Prophylaxis against gastrointestinal ulcer
     Dosage: 15 MG, QD
     Route: 048
     Dates: start: 20221007
  6. ACETAMINOPHEN [Concomitant]
     Active Substance: ACETAMINOPHEN
     Indication: Headache
     Dosage: 400 MG, QD
     Route: 048
     Dates: start: 20221012, end: 20221013
  7. EDARAVONE [Concomitant]
     Active Substance: EDARAVONE
     Indication: Cerebral infarction
     Dosage: 30 MG, BID
     Route: 042
     Dates: start: 20221007, end: 20221013

REACTIONS (2)
  - Cerebral haemorrhage [Recovered/Resolved with Sequelae]
  - Drug interaction [Unknown]

NARRATIVE: CASE EVENT DATE: 20221013
